FAERS Safety Report 24374124 (Version 1)
Quarter: 2024Q3

REPORT INFORMATION
  Report Type: Report from Study
  Country: US (occurrence: US)
  Receive Date: 20240927
  Receipt Date: 20240927
  Transmission Date: 20241017
  Serious: Yes (Death)
  Sender: JOHNSON AND JOHNSON
  Company Number: US-JNJFOC-20240960291

PATIENT
  Age: 55 Year
  Sex: Female

DRUGS (1)
  1. CILTACABTAGENE AUTOLEUCEL [Suspect]
     Active Substance: CILTACABTAGENE AUTOLEUCEL
     Indication: Plasma cell myeloma
     Dosage: 0.7X10^6 CAR-T CELLS
     Route: 065
     Dates: start: 2023

REACTIONS (3)
  - Viral infection [Fatal]
  - Acute respiratory distress syndrome [Fatal]
  - Plasma cell myeloma [Fatal]
